FAERS Safety Report 5795981-8 (Version None)
Quarter: 2008Q2

REPORT INFORMATION
  Report Type: 
  Country: None (occurrence: None)
  Receive Date: 20080626
  Receipt Date: 20080619
  Transmission Date: 20081010
  Serious: Yes (Death, Hospitalization, Other)
  Sender: FDA-Public Use
  Company Number: 2007-02381

PATIENT
  Age: 67 Year
  Sex: Female
  Weight: 69.4 kg

DRUGS (16)
  1. VELCADE [Suspect]
     Indication: MULTIPLE MYELOMA
     Dosage: 1.7 MG/M2, IV BOLUS
     Route: 040
     Dates: start: 20070305, end: 20070710
  2. DEXAMETHASONE TAB [Suspect]
     Indication: MULTIPLE MYELOMA
     Dosage: 20.00 MG, ORAL
     Route: 048
     Dates: start: 20070403, end: 20070710
  3. DUONEB [Concomitant]
  4. MAGIC MOUTH WASH [Concomitant]
  5. FLUCONAZOLE [Concomitant]
  6. LIDOCAINE VISCOUS (LIDOCAINE HYDROCHLORIDE) [Concomitant]
  7. ALLEGRA [Concomitant]
  8. ATIVAN [Concomitant]
  9. CARAFATE [Concomitant]
  10. LASIX [Concomitant]
  11. LOTENSIN [Concomitant]
  12. LOVENOX [Concomitant]
  13. NORVASC [Concomitant]
  14. PROTONIX [Concomitant]
  15. COREG [Concomitant]
  16. FOSINOPRIL SODIUM [Concomitant]

REACTIONS (9)
  - ANAEMIA [None]
  - BONE PAIN [None]
  - CARDIOMEGALY [None]
  - DISEASE PROGRESSION [None]
  - FATIGUE [None]
  - HYPERCALCAEMIA [None]
  - LETHARGY [None]
  - MENTAL STATUS CHANGES [None]
  - PULMONARY EMBOLISM [None]
